FAERS Safety Report 11436606 (Version 1)
Quarter: 2015Q3

REPORT INFORMATION
  Report Type: Spontaneous
  Country: US (occurrence: US)
  Receive Date: 20150821
  Receipt Date: 20150821
  Transmission Date: 20151125
  Serious: No
  Sender: FDA-Public Use
  Company Number: US-ELI_LILLY_AND_COMPANY-US201402003894

PATIENT
  Sex: Male
  Weight: 33.56 kg

DRUGS (7)
  1. CINNAMON                           /01647501/ [Suspect]
     Active Substance: CINNAMON
     Indication: DIABETES MELLITUS
     Dosage: 2 G, QD
     Route: 065
  2. CINNAMON                           /01647501/ [Suspect]
     Active Substance: CINNAMON
     Dosage: 3 G, QD
     Route: 065
  3. VICTOZA [Suspect]
     Active Substance: LIRAGLUTIDE
     Indication: DIABETES MELLITUS
     Dosage: 0.6 MG, QD
     Route: 065
  4. CINNAMON                           /01647501/ [Suspect]
     Active Substance: CINNAMON
     Dosage: 1.5 G, BID
  5. METFORMIN [Concomitant]
     Active Substance: METFORMIN HYDROCHLORIDE
     Dosage: 500 MG, TID
  6. CIALIS [Suspect]
     Active Substance: TADALAFIL
     Indication: BENIGN PROSTATIC HYPERPLASIA
     Dosage: 5 MG, QD
     Route: 048
     Dates: start: 20131001
  7. CIALIS [Suspect]
     Active Substance: TADALAFIL
     Indication: DIABETES MELLITUS

REACTIONS (3)
  - Weight decreased [Recovering/Resolving]
  - Glycosylated haemoglobin decreased [Recovering/Resolving]
  - Blood glucose decreased [Recovering/Resolving]
